FAERS Safety Report 4364943-X (Version None)
Quarter: 2004Q2

REPORT INFORMATION
  Report Type: 
  Country: None (occurrence: None)
  Receive Date: 20040521
  Receipt Date: 20040510
  Transmission Date: 20050107
  Serious: Yes (Other)
  Sender: FDA-Public Use
  Company Number: 2004031456

PATIENT
  Age: 55 Year
  Sex: Male
  Weight: 111.1313 kg

DRUGS (2)
  1. LIPITOR [Suspect]
     Indication: BLOOD CHOLESTEROL INCREASED
     Dosage: 20 MG (20 MG DAILY) ORAL
     Route: 048
     Dates: start: 20040101, end: 20040401
  2. ALLOPURINOL [Concomitant]

REACTIONS (10)
  - ARTHRALGIA [None]
  - DYSURIA [None]
  - MOVEMENT DISORDER [None]
  - MUSCLE ATROPHY [None]
  - MUSCULAR WEAKNESS [None]
  - MYALGIA [None]
  - POST PROCEDURAL PAIN [None]
  - RENAL CELL CARCINOMA STAGE UNSPECIFIED [None]
  - SPLEEN DISORDER [None]
  - TENDON DISORDER [None]
